FAERS Safety Report 21952110 (Version 4)
Quarter: 2025Q1

REPORT INFORMATION
  Report Type: Spontaneous
  Country: US (occurrence: US)
  Receive Date: 20230203
  Receipt Date: 20250117
  Transmission Date: 20250408
  Serious: Yes (Other)
  Sender: PFIZER
  Company Number: US-PFIZER INC-PV202300018457

PATIENT
  Age: 80 Year
  Sex: Female
  Weight: 45.351 kg

DRUGS (8)
  1. IBRANCE [Suspect]
     Active Substance: PALBOCICLIB
     Indication: Breast cancer female
     Route: 048
     Dates: start: 202210
  2. IBRANCE [Suspect]
     Active Substance: PALBOCICLIB
     Indication: Hypercalcaemia
     Route: 048
  3. IBRANCE [Suspect]
     Active Substance: PALBOCICLIB
     Route: 048
     Dates: start: 202304
  4. IBRANCE [Suspect]
     Active Substance: PALBOCICLIB
     Route: 048
  5. CARVEDILOL [Concomitant]
     Active Substance: CARVEDILOL
     Dates: start: 202102
  6. ENTRESTO [Concomitant]
     Active Substance: SACUBITRIL\VALSARTAN
     Dates: start: 202102
  7. LETROZOLE [Concomitant]
     Active Substance: LETROZOLE
     Dates: start: 202207
  8. SPIRONOLACTONE [Concomitant]
     Active Substance: SPIRONOLACTONE
     Dates: start: 202102

REACTIONS (4)
  - Transfusion [Unknown]
  - Off label use [Unknown]
  - Malaise [Recovered/Resolved]
  - Eating disorder [Recovered/Resolved]

NARRATIVE: CASE EVENT DATE: 20221001
